FAERS Safety Report 8400469-1 (Version None)
Quarter: 2012Q2

REPORT INFORMATION
  Report Type: 
  Country: None (occurrence: None)
  Receive Date: 20120531
  Receipt Date: 20120523
  Transmission Date: 20120825
  Serious: Yes (Other)
  Sender: FDA-Public Use
  Company Number: HR-ABBOTT-12P-216-0922569-00

PATIENT
  Age: 26 Year
  Sex: Female
  Weight: 58 kg

DRUGS (2)
  1. HUMIRA [Suspect]
     Indication: CROHN'S DISEASE
     Route: 058
     Dates: start: 20110928, end: 20120201
  2. ASACOL [Concomitant]
     Indication: CROHN'S DISEASE
     Route: 048
     Dates: start: 20100801

REACTIONS (11)
  - SWOLLEN TONGUE [None]
  - EYE SWELLING [None]
  - ACNE [None]
  - ERYTHEMA [None]
  - RASH PUSTULAR [None]
  - HYPERKERATOSIS [None]
  - ECZEMA [None]
  - LIP SWELLING [None]
  - DERMATITIS PSORIASIFORM [None]
  - ALOPECIA [None]
  - PRURITUS [None]
